FAERS Safety Report 24761377 (Version 1)
Quarter: 2024Q4

REPORT INFORMATION
  Report Type: Spontaneous
  Country: FR (occurrence: FR)
  Receive Date: 20241220
  Receipt Date: 20241220
  Transmission Date: 20250115
  Serious: Yes (Other)
  Sender: PURDUE
  Company Number: FR-PURDUE-USA-2022-0292484

PATIENT
  Age: 85 Year
  Sex: Female

DRUGS (23)
  1. OXYCODONE HYDROCHLORIDE [Suspect]
     Active Substance: OXYCODONE HYDROCHLORIDE
     Indication: Gait disturbance
     Dosage: UNK
     Route: 065
     Dates: start: 20210922, end: 20210924
  2. VENOFER [Suspect]
     Active Substance: IRON SUCROSE
     Indication: Anaemia
     Dosage: LE 23/09/2021 ET LE 25/09/2021
     Route: 065
     Dates: start: 20210923, end: 20210925
  3. VENOFER [Suspect]
     Active Substance: IRON SUCROSE
     Dosage: LE 23/09/2021 ET LE 25/09/2021
     Route: 042
     Dates: start: 20210923, end: 20210925
  4. ROPIVACAINE HYDROCHLORIDE [Suspect]
     Active Substance: ROPIVACAINE HYDROCHLORIDE
     Indication: Anaesthesia
     Dosage: 20 MG, DAILY
     Route: 065
     Dates: start: 20210922, end: 20210922
  5. NEFOPAM [Suspect]
     Active Substance: NEFOPAM
     Indication: Gait disturbance
     Dosage: VARIABLE
     Route: 065
     Dates: start: 20210919, end: 20210922
  6. NEFOPAM [Suspect]
     Active Substance: NEFOPAM
     Dosage: UNK
     Route: 048
     Dates: start: 20210919, end: 20210922
  7. LOVENOX [Suspect]
     Active Substance: ENOXAPARIN SODIUM
     Indication: Prophylaxis
     Dosage: UNK
     Route: 065
     Dates: start: 20210919, end: 20210923
  8. LOVENOX [Suspect]
     Active Substance: ENOXAPARIN SODIUM
     Dosage: UNK
     Route: 058
     Dates: start: 20210919, end: 20210923
  9. EPHEDRINE HYDROCHLORIDE [Suspect]
     Active Substance: EPHEDRINE HYDROCHLORIDE
     Indication: Blood pressure management
     Dosage: 9 MG, DAILY
     Route: 065
     Dates: start: 20210922, end: 20210922
  10. EPHEDRINE HYDROCHLORIDE [Suspect]
     Active Substance: EPHEDRINE HYDROCHLORIDE
     Dosage: 9 MILLIGRAM, DAILY
     Route: 042
     Dates: start: 20210922, end: 20210922
  11. HYDROXYZINE [Suspect]
     Active Substance: HYDROXYZINE HYDROCHLORIDE
     Indication: Product used for unknown indication
     Dosage: 25 MG, DAILY
     Route: 065
     Dates: start: 20210922, end: 20210927
  12. HYDROXYZINE [Suspect]
     Active Substance: HYDROXYZINE HYDROCHLORIDE
     Dosage: 25 MILLIGRAM, DAILY
     Route: 048
     Dates: start: 20210922, end: 20210927
  13. SUFENTANIL [Suspect]
     Active Substance: SUFENTANIL
     Indication: Analgesic therapy
     Dosage: 35 MCG, DAILY
     Route: 065
     Dates: start: 20210922, end: 20210922
  14. SUFENTANIL [Suspect]
     Active Substance: SUFENTANIL
     Dosage: 35 MCG, DAILY
     Route: 042
     Dates: start: 20210922, end: 20210922
  15. KETAMINE [Suspect]
     Active Substance: KETAMINE
     Indication: General anaesthesia
     Dosage: 30 MG, DAILY
     Route: 065
     Dates: start: 20210922, end: 20210922
  16. KETAMINE [Suspect]
     Active Substance: KETAMINE
     Dosage: 30 MILLIGRAM, DAILY
     Route: 042
     Dates: start: 20210922, end: 20210922
  17. KETAMINE [Suspect]
     Active Substance: KETAMINE
     Dosage: 10 MG/ML
     Route: 042
     Dates: start: 20240922, end: 20240922
  18. PROPOFOL LIPURO [Suspect]
     Active Substance: PROPOFOL
     Indication: General anaesthesia
     Dosage: INCONNUE
     Route: 065
     Dates: start: 20210922, end: 20210922
  19. PROPOFOL LIPURO [Suspect]
     Active Substance: PROPOFOL
     Dosage: UNK
     Route: 042
     Dates: start: 20210922, end: 20210922
  20. NIMBEX [Suspect]
     Active Substance: CISATRACURIUM BESYLATE
     Indication: Neuromuscular blocking therapy
     Dosage: 16 MG, DAILY
     Route: 065
     Dates: start: 20210922, end: 20210922
  21. NIMBEX [Suspect]
     Active Substance: CISATRACURIUM BESYLATE
     Dosage: 16 MILLIGRAM
     Route: 042
     Dates: start: 20210922, end: 20210922
  22. CEFAZOLIN [Suspect]
     Active Substance: CEFAZOLIN
     Indication: Prophylaxis
     Dosage: 2 G, DAILY
     Route: 065
     Dates: start: 20210922, end: 20210922
  23. CEFAZOLIN [Suspect]
     Active Substance: CEFAZOLIN
     Dosage: 2 GRAM, DAILY (1 TOTAL)
     Route: 042
     Dates: start: 20210922, end: 20210922

REACTIONS (1)
  - Mixed liver injury [Recovering/Resolving]

NARRATIVE: CASE EVENT DATE: 20210929
